FAERS Safety Report 25623774 (Version 1)
Quarter: 2025Q3

REPORT INFORMATION
  Report Type: Spontaneous
  Country: EU (occurrence: EU)
  Receive Date: 20250730
  Receipt Date: 20250730
  Transmission Date: 20251021
  Serious: Yes (Life-Threatening, Hospitalization, Congenital Anomaly)
  Sender: MYLAN
  Company Number: EU-MYLANLABS-2025M1064271

PATIENT

DRUGS (8)
  1. SERTRALINE [Suspect]
     Active Substance: SERTRALINE HYDROCHLORIDE
     Indication: Depression
  2. SERTRALINE [Suspect]
     Active Substance: SERTRALINE HYDROCHLORIDE
  3. SERTRALINE [Suspect]
     Active Substance: SERTRALINE HYDROCHLORIDE
     Route: 064
  4. SERTRALINE [Suspect]
     Active Substance: SERTRALINE HYDROCHLORIDE
     Route: 064
  5. SERTRALINE [Suspect]
     Active Substance: SERTRALINE HYDROCHLORIDE
  6. SERTRALINE [Suspect]
     Active Substance: SERTRALINE HYDROCHLORIDE
  7. SERTRALINE [Suspect]
     Active Substance: SERTRALINE HYDROCHLORIDE
     Route: 064
  8. SERTRALINE [Suspect]
     Active Substance: SERTRALINE HYDROCHLORIDE
     Route: 064

REACTIONS (5)
  - Newborn persistent pulmonary hypertension [Recovering/Resolving]
  - Right ventricular hypertrophy [Recovering/Resolving]
  - Right ventricular systolic pressure increased [Recovering/Resolving]
  - Respiratory distress [Recovering/Resolving]
  - Foetal exposure during pregnancy [Recovered/Resolved]
